FAERS Safety Report 13430039 (Version 6)
Quarter: 2017Q3

REPORT INFORMATION
  Report Type: Report from Study
  Country: US (occurrence: US)
  Receive Date: 20170412
  Receipt Date: 20170712
  Transmission Date: 20171127
  Serious: Yes (Other)
  Sender: FDA-Public Use
  Company Number: US-GILEAD-2017-0264298

PATIENT
  Age: 59 Year
  Sex: Female

DRUGS (7)
  1. ADCIRCA [Concomitant]
     Active Substance: TADALAFIL
  2. METOPROLOL. [Concomitant]
     Active Substance: METOPROLOL
  3. ORENITRAM [Suspect]
     Active Substance: TREPROSTINIL
     Indication: PULMONARY ARTERIAL HYPERTENSION
     Dosage: 125 UG, UNK
     Route: 048
  4. AMBRISENTAN [Suspect]
     Active Substance: AMBRISENTAN
     Indication: SCLERODERMA
  5. DILTIAZEM. [Concomitant]
     Active Substance: DILTIAZEM
  6. AMBRISENTAN [Suspect]
     Active Substance: AMBRISENTAN
     Indication: PULMONARY ARTERIAL HYPERTENSION
     Dosage: 10 MG, QD
     Route: 048
     Dates: start: 20140911
  7. TADALAFIL [Concomitant]
     Active Substance: TADALAFIL

REACTIONS (8)
  - Hot flush [Unknown]
  - Dyspnoea exertional [Unknown]
  - Vomiting [Unknown]
  - Pulmonary embolism [Recovered/Resolved]
  - Headache [Recovered/Resolved]
  - Vomiting [Not Recovered/Not Resolved]
  - Nausea [Unknown]
  - Dyspnoea [Recovered/Resolved]
